FAERS Safety Report 5814883-1 (Version None)
Quarter: 2008Q3

REPORT INFORMATION
  Report Type: 
  Country: None (occurrence: None)
  Receive Date: 20080718
  Receipt Date: 20080708
  Transmission Date: 20090109
  Serious: Yes (Other)
  Sender: FDA-Public Use
  Company Number: GB-ABBOTT-08P-167-0461928-00

PATIENT
  Age: 46 Year
  Sex: Male

DRUGS (2)
  1. VALPROATE SODIUM [Suspect]
     Indication: DRUG USE FOR UNKNOWN INDICATION
     Dates: end: 20080608
  2. CLOZAPINE [Suspect]
     Indication: SCHIZOPHRENIA
     Dates: start: 20071113, end: 20080606

REACTIONS (2)
  - NEUTROPENIA [None]
  - NEUTROPHIL COUNT DECREASED [None]
